FAERS Safety Report 19588000 (Version 2)
Quarter: 2021Q4

REPORT INFORMATION
  Report Type: Spontaneous
  Country: US (occurrence: US)
  Receive Date: 20210721
  Receipt Date: 20211220
  Transmission Date: 20220303
  Serious: Yes (Other)
  Sender: FDA-Public Use
  Company Number: US-GLAXOSMITHKLINE-US2021GSK153072

PATIENT
  Sex: Female

DRUGS (6)
  1. ZANTAC [Suspect]
     Active Substance: RANITIDINE HYDROCHLORIDE
     Indication: Helicobacter infection
     Dosage: UNK
     Route: 065
     Dates: start: 200001, end: 201712
  2. ZANTAC [Suspect]
     Active Substance: RANITIDINE HYDROCHLORIDE
     Dosage: UNK
     Route: 065
     Dates: start: 200701, end: 201701
  3. ZANTAC [Suspect]
     Active Substance: RANITIDINE HYDROCHLORIDE
     Indication: Helicobacter infection
     Dosage: UNK
     Route: 065
     Dates: start: 200001, end: 201712
  4. ZANTAC [Suspect]
     Active Substance: RANITIDINE HYDROCHLORIDE
     Dosage: UNK
     Route: 065
     Dates: start: 200701, end: 201701
  5. RANITIDINE [Suspect]
     Active Substance: RANITIDINE
     Indication: Helicobacter infection
     Dosage: UNK
     Route: 065
     Dates: start: 200001, end: 201712
  6. RANITIDINE [Suspect]
     Active Substance: RANITIDINE
     Indication: Helicobacter infection
     Dosage: UNK
     Route: 065
     Dates: start: 200001, end: 201712

REACTIONS (1)
  - Pancreatic carcinoma [Unknown]
